FAERS Safety Report 8860739 (Version 1)
Quarter: 2012Q4

REPORT INFORMATION
  Report Type: 
  Country: US (occurrence: US)
  Receive Date: 20121025
  Receipt Date: 20121025
  Transmission Date: 20130627
  Serious: Yes (Other)
  Sender: FDA-Public Use
  Company Number: CHPA2012US022016

PATIENT
  Sex: Male

DRUGS (1)
  1. EXCEDRIN EXTRA STRENGTH [Suspect]
     Indication: PAIN
     Dosage: Unk, Unk
     Route: 048

REACTIONS (3)
  - Laceration [Unknown]
  - Road traffic accident [Unknown]
  - Pain [Unknown]
